FAERS Safety Report 13285982 (Version 1)
Quarter: 2017Q1

REPORT INFORMATION
  Report Type: Spontaneous
  Country: US (occurrence: US)
  Receive Date: 20170302
  Receipt Date: 20170302
  Transmission Date: 20170428
  Serious: No
  Sender: FDA-Public Use
  Company Number: None

PATIENT
  Age: 64 Year
  Sex: Female

DRUGS (2)
  1. IMATINIB MES TAB 400MG [Suspect]
     Active Substance: IMATINIB
     Indication: WHITE BLOOD CELL COUNT INCREASED
  2. IMATINIB MES TAB 400MG [Suspect]
     Active Substance: IMATINIB
     Indication: ESSENTIAL THROMBOCYTHAEMIA

REACTIONS (2)
  - Rash [None]
  - Alopecia [None]

NARRATIVE: CASE EVENT DATE: 20170302
